FAERS Safety Report 4808553-6 (Version None)
Quarter: 2005Q4

REPORT INFORMATION
  Report Type: 
  Country: None (occurrence: None)
  Receive Date: 20051021
  Receipt Date: 20040804
  Transmission Date: 20060501
  Serious: No
  Sender: FDA-Public Use
  Company Number: FR_040804575

PATIENT
  Age: 38 Year
  Sex: Male

DRUGS (2)
  1. ZYPREXA [Suspect]
     Dosage: 20 MG DAY
     Dates: start: 20040705
  2. SINTROM [Concomitant]

REACTIONS (1)
  - PROTHROMBIN LEVEL INCREASED [None]
